FAERS Safety Report 16273828 (Version 1)
Quarter: 2019Q2

REPORT INFORMATION
  Report Type: Spontaneous
  Country: US (occurrence: US)
  Receive Date: 20190503
  Receipt Date: 20190503
  Transmission Date: 20190711
  Serious: No
  Sender: FDA-Public Use
  Company Number: US-RADIUS HEALTH INC.-2019US000422

PATIENT
  Age: 75 Year
  Sex: Female

DRUGS (2)
  1. TYMLOS [Suspect]
     Active Substance: ABALOPARATIDE
     Indication: OSTEOPOROSIS POSTMENOPAUSAL
     Dosage: 80 MCG, QD
     Route: 058
     Dates: start: 201809
  2. TYMLOS [Suspect]
     Active Substance: ABALOPARATIDE
     Indication: ARTHRITIS
     Dosage: 80 MCG, DAILY
     Route: 058
     Dates: start: 201809

REACTIONS (6)
  - Injection site discomfort [Unknown]
  - Palpitations [Recovering/Resolving]
  - Off label use [Unknown]
  - Dizziness [Recovered/Resolved]
  - Heart rate increased [Recovered/Resolved]
  - Contusion [Recovering/Resolving]

NARRATIVE: CASE EVENT DATE: 201902
